FAERS Safety Report 22294522 (Version 2)
Quarter: 2024Q2

REPORT INFORMATION
  Report Type: Spontaneous
  Country: US (occurrence: US)
  Receive Date: 20230508
  Receipt Date: 20240510
  Transmission Date: 20240715
  Serious: No
  Sender: FDA-Public Use
  Company Number: US-ASTELLAS-2022US034516

PATIENT
  Age: 73 Year
  Sex: Female

DRUGS (4)
  1. LEXISCAN [Suspect]
     Active Substance: REGADENOSON
     Indication: Cardiac stress test
     Dosage: 1 DF, ONCE
     Route: 042
     Dates: start: 20220923, end: 20220923
  2. LEXISCAN [Suspect]
     Active Substance: REGADENOSON
     Indication: Cardiac stress test
     Dosage: 1 DF, ONCE
     Route: 042
     Dates: start: 20220923, end: 20220923
  3. LEXISCAN [Suspect]
     Active Substance: REGADENOSON
     Indication: Cardiac stress test
     Dosage: 1 DF, ONCE
     Route: 042
     Dates: start: 20220923, end: 20220923
  4. LEXISCAN [Suspect]
     Active Substance: REGADENOSON
     Indication: Cardiac stress test
     Dosage: 1 DF, ONCE
     Route: 042
     Dates: start: 20220923, end: 20220923

REACTIONS (15)
  - Oral discomfort [Recovered/Resolved]
  - Tremor [Unknown]
  - Tongue discomfort [Recovered/Resolved]
  - Nasal discomfort [Unknown]
  - Nasal congestion [Unknown]
  - Headache [Not Recovered/Not Resolved]
  - Nausea [Unknown]
  - Sneezing [Unknown]
  - Gingival pain [Not Recovered/Not Resolved]
  - Gingival erythema [Not Recovered/Not Resolved]
  - Gingival discomfort [Recovered/Resolved]
  - Tongue erythema [Not Recovered/Not Resolved]
  - Oral mucosal erythema [Not Recovered/Not Resolved]
  - Oral pain [Not Recovered/Not Resolved]
  - Glossodynia [Not Recovered/Not Resolved]

NARRATIVE: CASE EVENT DATE: 20220923
